FAERS Safety Report 5060555-3 (Version None)
Quarter: 2006Q3

REPORT INFORMATION
  Report Type: 
  Country: None (occurrence: None)
  Receive Date: 20060725
  Receipt Date: 20060720
  Transmission Date: 20061208
  Serious: Yes (Hospitalization)
  Sender: FDA-Public Use
  Company Number: JP-JNJFOC-20060304416

PATIENT
  Sex: Female

DRUGS (7)
  1. MICONAZOLE [Suspect]
     Indication: ORAL CANDIDIASIS
     Route: 048
     Dates: start: 20060202, end: 20060207
  2. WARFARIN SODIUM [Interacting]
     Indication: DRUG USE FOR UNKNOWN INDICATION
     Route: 048
     Dates: start: 20060204, end: 20060224
  3. DIGOXIN [Interacting]
     Indication: CARDIAC FAILURE CONGESTIVE
     Route: 048
  4. DILTIAZEM HCL [Interacting]
     Indication: ATRIAL FIBRILLATION
     Route: 065
  5. TEPRENONE [Interacting]
     Indication: GASTROENTERITIS
     Route: 065
  6. FUROSEMIDE [Interacting]
     Indication: CARDIAC FAILURE CONGESTIVE
     Route: 065
  7. ATORVASTATIN CALCIUM [Interacting]
     Indication: HYPERCHOLESTEROLAEMIA
     Route: 065
     Dates: start: 20051014

REACTIONS (4)
  - DRUG INTERACTION [None]
  - HAEMORRHAGE SUBCUTANEOUS [None]
  - INTERNATIONAL NORMALISED RATIO INCREASED [None]
  - PARALYSIS [None]
